FAERS Safety Report 7971064 (Version 7)
Quarter: 2014Q2

REPORT INFORMATION
  Report Type: Spontaneous
  Country: US (occurrence: US)
  Receive Date: 20110602
  Receipt Date: 20131024
  Transmission Date: 20141212
  Serious: Yes (Hospitalization, Other)
  Sender: FDA-Public Use
  Company Number: US-PFIZER INC-2011117324

PATIENT
  Age: 56 Year
  Sex: Female

DRUGS (10)
  1. DILANTIN [Suspect]
     Indication: CONVULSION PROPHYLAXIS
     Dosage: 1000 MG, UNK
     Route: 042
     Dates: start: 20080723, end: 20080723
  2. DILANTIN [Suspect]
     Dosage: 100 MG, 3X/DAY
     Route: 042
     Dates: start: 20080723, end: 20080724
  3. DILANTIN [Suspect]
     Indication: CONVULSION PROPHYLAXIS
     Dosage: 100 MG, 3X/DAY
     Route: 048
     Dates: start: 20080724, end: 20080725
  4. DILANTIN [Suspect]
     Dosage: 100 MG, 3X/DAY
     Route: 048
     Dates: start: 20080802, end: 20080805
  5. DILANTIN [Suspect]
     Dosage: 100 MG, 2X/DAY
     Route: 048
     Dates: start: 20080809
  6. MORPHINE [Concomitant]
     Indication: PAIN
     Dosage: 4 MG, UNK
     Route: 042
     Dates: start: 20080802, end: 20080802
  7. LEVAQUIN [Concomitant]
     Dosage: UNK
     Route: 048
     Dates: start: 20080802, end: 20080804
  8. MICRO K EXTENCAPS [Concomitant]
     Dosage: UNK
     Dates: start: 20080802, end: 20080806
  9. SINEMET [Concomitant]
     Dosage: UNK
     Route: 048
     Dates: start: 20080802, end: 20080806
  10. KEPPRA [Concomitant]
     Dosage: 500 MG, 2X/DAY
     Route: 048
     Dates: start: 20080805, end: 20080805

REACTIONS (1)
  - Stevens-Johnson syndrome [Recovering/Resolving]
